FAERS Safety Report 7431041-8 (Version None)
Quarter: 2011Q2

REPORT INFORMATION
  Report Type: 
  Country: None (occurrence: None)
  Receive Date: 20110421
  Receipt Date: 20110415
  Transmission Date: 20111010
  Serious: Yes (Other)
  Sender: FDA-Public Use
  Company Number: FR-PFIZER INC-2009286389

PATIENT
  Age: 3 Month
  Sex: Male

DRUGS (6)
  1. NOCERTONE [Suspect]
     Route: 063
  2. LAMICTAL [Suspect]
     Route: 063
  3. NEURONTIN [Suspect]
     Route: 063
  4. LAMICTAL [Suspect]
     Indication: EPILEPSY
     Dosage: 200 MG, 2X/DAY
     Route: 064
  5. NEURONTIN [Suspect]
     Indication: EPILEPSY
     Dosage: 800 MG, 2X/DAY
     Route: 064
  6. NOCERTONE [Suspect]
     Indication: MIGRAINE
     Dosage: 60 MG, 2X/DAY
     Route: 064

REACTIONS (4)
  - DRUG EXPOSURE DURING PREGNANCY [None]
  - DRUG EXPOSURE VIA BREAST MILK [None]
  - ABNORMAL BEHAVIOUR [None]
  - HYPOTONIA [None]
